FAERS Safety Report 6421953-6 (Version None)
Quarter: 2009Q4

REPORT INFORMATION
  Report Type: 
  Country: None (occurrence: None)
  Receive Date: 20091029
  Receipt Date: 20091029
  Transmission Date: 20100525
  Serious: Yes (Other)
  Sender: FDA-Public Use
  Company Number: None

PATIENT
  Sex: Male
  Weight: 100.5 kg

DRUGS (1)
  1. VALPROIC ACID 500MG BID UNKNOWN [Suspect]
     Indication: BIPOLAR DISORDER
     Dosage: 500 MG BID PO SYMPTOMS IN ONE WEEK
     Route: 048

REACTIONS (8)
  - AGGRESSION [None]
  - DISTURBANCE IN ATTENTION [None]
  - DRUG INEFFECTIVE [None]
  - INSOMNIA [None]
  - IRRITABILITY [None]
  - PRODUCT SUBSTITUTION ISSUE [None]
  - RESTLESSNESS [None]
  - TACHYPHRENIA [None]
